FAERS Safety Report 20743737 (Version 2)
Quarter: 2024Q1

REPORT INFORMATION
  Report Type: Spontaneous
  Country: US (occurrence: US)
  Receive Date: 20220425
  Receipt Date: 20240216
  Transmission Date: 20240410
  Serious: No
  Sender: FDA-Public Use
  Company Number: US-TEVA-2022-US-2024278

PATIENT
  Age: 65 Year
  Sex: Female

DRUGS (13)
  1. AUSTEDO [Suspect]
     Active Substance: DEUTETRABENAZINE
     Indication: Tardive dyskinesia
     Route: 048
  2. BUDESONIDE [Suspect]
     Active Substance: BUDESONIDE
     Dosage: DOSAGE TEXT: STRENGTH:0.5/2 MG/ML
     Route: 065
     Dates: end: 20220327
  3. ALBUTEROL [Concomitant]
     Active Substance: ALBUTEROL
  4. ARMOUR THYROID [Concomitant]
     Active Substance: THYROID, PORCINE
  5. BUSPIRONE [Concomitant]
     Active Substance: BUSPIRONE HYDROCHLORIDE
     Route: 048
  6. CYTOMEL [Concomitant]
     Active Substance: LIOTHYRONINE SODIUM
     Route: 048
  7. DULOXETINE [Concomitant]
     Active Substance: DULOXETINE
     Route: 048
  8. IPRATROPIUM [Concomitant]
     Active Substance: IPRATROPIUM
     Dosage: 42 MC9/SPRAY 1 SPRAY, .NOSTRILS, BOTH,
     Route: 045
  9. LYRICA [Concomitant]
     Active Substance: PREGABALIN
     Dosage: TIME INTERVAL: 0.33333333 DAYS
     Route: 048
  10. NEXIUM [Concomitant]
     Active Substance: ESOMEPRAZOLE MAGNESIUM
     Route: 048
  11. SPIRONOLACTONE [Concomitant]
     Active Substance: SPIRONOLACTONE
     Route: 048
  12. VISTARIL [Concomitant]
     Active Substance: HYDROXYZINE PAMOATE
     Route: 048
  13. VRAYLAR [Concomitant]
     Active Substance: CARIPRAZINE
     Route: 048

REACTIONS (3)
  - Blood pressure decreased [Unknown]
  - Chills [Unknown]
  - Hyperhidrosis [Unknown]
